FAERS Safety Report 4357046-1 (Version None)
Quarter: 2004Q2

REPORT INFORMATION
  Report Type: 
  Country: None (occurrence: None)
  Receive Date: 20040512
  Receipt Date: 20040421
  Transmission Date: 20050107
  Serious: Yes (Other)
  Sender: FDA-Public Use
  Company Number: FR-GLAXOSMITHKLINE-B0331375A

PATIENT
  Age: 13 Year
  Sex: Female

DRUGS (2)
  1. ZOVIRAX [Suspect]
     Indication: MENINGITIS
     Route: 042
     Dates: start: 20020101
  2. QUININE [Concomitant]
     Route: 042

REACTIONS (2)
  - SKIN GRAFT [None]
  - SKIN NECROSIS [None]
